FAERS Safety Report 5594369-2 (Version None)
Quarter: 2008Q1

REPORT INFORMATION
  Report Type: 
  Country: None (occurrence: None)
  Receive Date: 20080115
  Receipt Date: 20080107
  Transmission Date: 20080703
  Serious: Yes (Other)
  Sender: FDA-Public Use
  Company Number: CHNY2007DE03671

PATIENT
  Age: 70 Year
  Sex: Female
  Weight: 72 kg

DRUGS (1)
  1. LAMISIL [Suspect]
     Indication: TINEA PEDIS
     Dosage: TOPICAL
     Route: 061
     Dates: start: 20071026, end: 20071026

REACTIONS (7)
  - DRUG INEFFECTIVE [None]
  - HYPERSENSITIVITY [None]
  - OEDEMA PERIPHERAL [None]
  - PAIN [None]
  - SKIN EXFOLIATION [None]
  - SKIN HAEMORRHAGE [None]
  - SKIN LACERATION [None]
